FAERS Safety Report 5597272-7 (Version None)
Quarter: 2007Q4

REPORT INFORMATION
  Report Type: 
  Country: None (occurrence: None)
  Receive Date: 20071221
  Receipt Date: 20071103
  Transmission Date: 20080405
  Serious: No
  Sender: FDA-Public Use
  Company Number: SPV1-2007-04844

PATIENT
  Age: 11 Year
  Sex: Male
  Weight: 26.8 kg

DRUGS (2)
  1. VYVANSE [Suspect]
     Indication: ATTENTION DEFICIT/HYPERACTIVITY DISORDER
     Dosage: 50 MG, 1X/DAY:QD
     Dates: start: 20071102
  2. CLONIDINE [Concomitant]

REACTIONS (1)
  - VOMITING [None]
